FAERS Safety Report 26034722 (Version 1)
Quarter: 2025Q4

REPORT INFORMATION
  Report Type: Spontaneous
  Country: BR (occurrence: BR)
  Receive Date: 20251112
  Receipt Date: 20251112
  Transmission Date: 20260118
  Serious: Yes (Hospitalization, Other)
  Sender: ALEXION PHARMACEUTICALS
  Company Number: BR-AstraZeneca-CH-00987505A

PATIENT
  Age: 80 Year
  Sex: Female

DRUGS (1)
  1. ROFLUMILAST [Suspect]
     Active Substance: ROFLUMILAST
     Dosage: 500 MILLIGRAM, QD

REACTIONS (4)
  - Bronchiolitis [Unknown]
  - Thrombosis [Unknown]
  - Hypertension [Unknown]
  - Intentional product misuse [Unknown]
